FAERS Safety Report 9041881 (Version 1)
Quarter: 2013Q1

REPORT INFORMATION
  Report Type: Report from Study
  Country: US (occurrence: US)
  Receive Date: 20130129
  Receipt Date: 20130129
  Transmission Date: 20140127
  Serious: No
  Sender: FDA-Public Use
  Company Number: US-ABBOTT-12P-163-0894754-00

PATIENT
  Age: 43 Year
  Sex: Female

DRUGS (8)
  1. HUMIRA 40 MG/0.8 ML PEN [Suspect]
     Indication: CROHN^S DISEASE
     Dosage: 160 MG LOADING DOSE
     Dates: start: 20120104
  2. HUMIRA 40 MG/0.8 ML PEN [Suspect]
     Dosage: 40 MG EVERY OTHER WEEK
  3. IMURAN [Concomitant]
     Indication: CROHN^S DISEASE
  4. TRAMADOL [Concomitant]
     Indication: BACK PAIN
     Dosage: USALLY TAKES AT NIGHT PRN
  5. B12 [Concomitant]
     Indication: PRODUCT USED FOR UNKNOWN INDICATION
     Dosage: WEEKLY
     Route: 030
  6. B12 [Concomitant]
     Dosage: MONTHLY
     Route: 030
     Dates: start: 201112
  7. NEURONTIN [Concomitant]
     Indication: SPINAL COLUMN STENOSIS
     Dosage: 300 MG BID
  8. NEURONTIN [Concomitant]

REACTIONS (6)
  - Injection site pain [Recovered/Resolved]
  - Injection site pain [Recovered/Resolved]
  - Injection site pain [Recovered/Resolved]
  - Lacrimation increased [Unknown]
  - Back pain [Unknown]
  - Injection site pain [Recovered/Resolved]
